FAERS Safety Report 9708737 (Version 1)
Quarter: 2013Q4

REPORT INFORMATION
  Report Type: Spontaneous
  Country: BM (occurrence: BM)
  Receive Date: 20131125
  Receipt Date: 20131125
  Transmission Date: 20140711
  Serious: Yes (Hospitalization)
  Sender: FDA-Public Use
  Company Number: BM-GLAXOSMITHKLINE-A1051122A

PATIENT
  Sex: Female

DRUGS (3)
  1. IMIGRAN [Suspect]
     Indication: MIGRAINE
     Route: 030
  2. IMIGRAN [Concomitant]
     Indication: MIGRAINE
  3. ZOLOFT [Concomitant]

REACTIONS (5)
  - Injection site abscess [Recovered/Resolved]
  - Bacterial infection [Recovered/Resolved]
  - Injection site erythema [Recovered/Resolved]
  - Injection site swelling [Recovered/Resolved]
  - Injection site scar [Not Recovered/Not Resolved]
